FAERS Safety Report 6677146-0 (Version None)
Quarter: 2010Q2

REPORT INFORMATION
  Report Type: 
  Country: None (occurrence: None)
  Receive Date: 20100412
  Receipt Date: 20100406
  Transmission Date: 20101027
  Serious: Yes (Hospitalization)
  Sender: FDA-Public Use
  Company Number: US-GILEAD-2010-0028348

PATIENT
  Sex: Female
  Weight: 63 kg

DRUGS (7)
  1. LETAIRIS [Suspect]
     Indication: PULMONARY ARTERIAL HYPERTENSION
     Route: 048
     Dates: start: 20090130
  2. REVATIO [Concomitant]
  3. LASIX [Concomitant]
  4. LOTENSIN [Concomitant]
  5. VENTAVIS SOL [Concomitant]
  6. PRILOSEC OTC [Concomitant]
  7. ATIVAN [Concomitant]

REACTIONS (1)
  - CHEST DISCOMFORT [None]
